FAERS Safety Report 6338124-4 (Version None)
Quarter: 2009Q3

REPORT INFORMATION
  Report Type: 
  Country: None (occurrence: None)
  Receive Date: 20090902
  Receipt Date: 20090820
  Transmission Date: 20100115
  Serious: Yes (Other)
  Sender: FDA-Public Use
  Company Number: US-PFIZER INC-2009258556

PATIENT
  Sex: Female

DRUGS (2)
  1. ZOLOFT [Suspect]
  2. VALIUM [Interacting]
     Dosage: UNK

REACTIONS (10)
  - ANXIETY [None]
  - ASTHENIA [None]
  - BIPOLAR DISORDER [None]
  - BLOOD PRESSURE FLUCTUATION [None]
  - DRUG INTERACTION [None]
  - HYPERHIDROSIS [None]
  - ILL-DEFINED DISORDER [None]
  - IMPAIRED WORK ABILITY [None]
  - PYREXIA [None]
  - UNEVALUABLE EVENT [None]
